FAERS Safety Report 5472012-0 (Version None)
Quarter: 2007Q3

REPORT INFORMATION
  Report Type: 
  Country: None (occurrence: None)
  Receive Date: 20070928
  Receipt Date: 20070913
  Transmission Date: 20080115
  Serious: Yes (Other)
  Sender: FDA-Public Use
  Company Number: GB-BOEHRINGER INGELHEIM PHARMACEUTICALS, INC.-2007-BP-21525AI

PATIENT
  Sex: Male

DRUGS (1)
  1. APTIVUS/RITONAVIR CAPSULES [Suspect]
     Route: 065

REACTIONS (1)
  - CONGENITAL APLASTIC ANAEMIA [None]
